FAERS Safety Report 8446513-7 (Version None)
Quarter: 2012Q2

REPORT INFORMATION
  Report Type: 
  Country: None (occurrence: None)
  Receive Date: 20120618
  Receipt Date: 20120613
  Transmission Date: 20120825
  Serious: Yes (Hospitalization)
  Sender: FDA-Public Use
  Company Number: US-MERCK-1204USA02729

PATIENT
  Age: 61 Year
  Sex: Female
  Weight: 106 kg

DRUGS (17)
  1. VICTOZA [Suspect]
     Route: 065
     Dates: end: 20120405
  2. GLIMEPIRIDE [Concomitant]
     Route: 065
  3. VITAMINS (UNSPECIFIED) [Concomitant]
     Route: 065
  4. SIMVASTATIN [Concomitant]
     Route: 048
  5. ATENOLOL [Concomitant]
     Route: 048
  6. ASPIRIN [Concomitant]
     Route: 065
  7. HUMALOG MIX 75/25 [Concomitant]
     Route: 051
  8. OMEGA-3 MARINE TRIGLYCERIDES [Concomitant]
     Route: 065
  9. VITAMIN D (UNSPECIFIED) [Concomitant]
     Route: 065
  10. VITAMIN B COMPLEX [Concomitant]
     Route: 065
  11. HYDROCHLOROTHIAZIDE [Concomitant]
     Route: 048
  12. DIOVAN [Concomitant]
     Route: 048
  13. DOXYCYCLINE [Concomitant]
     Route: 048
  14. GEMFIBROZIL [Concomitant]
     Route: 048
  15. HUMALOG MIX 75/25 [Concomitant]
     Indication: DIABETES MELLITUS
     Route: 051
  16. VITAMIN B COMPLEX [Concomitant]
     Route: 065
  17. JANUVIA [Suspect]
     Indication: TYPE 2 DIABETES MELLITUS
     Route: 048
     Dates: start: 20100101, end: 20120405

REACTIONS (8)
  - LEUKOCYTOSIS [None]
  - UPPER RESPIRATORY TRACT INFECTION [None]
  - ELECTROCARDIOGRAM T WAVE ABNORMAL [None]
  - HYPOTENSION [None]
  - CHEST PAIN [None]
  - BLOOD GLUCOSE INCREASED [None]
  - PANCREATITIS [None]
  - DIARRHOEA [None]
